FAERS Safety Report 7049266-2 (Version None)
Quarter: 2010Q4

REPORT INFORMATION
  Report Type: 
  Country: None (occurrence: None)
  Receive Date: 20101018
  Receipt Date: 20101012
  Transmission Date: 20110411
  Serious: No
  Sender: FDA-Public Use
  Company Number: US-PFIZER INC-2010111518

PATIENT
  Sex: Female

DRUGS (5)
  1. XALATAN [Suspect]
     Indication: GLAUCOMA
     Dosage: 2 GTT, 1X/DAY
     Route: 047
     Dates: start: 19930101
  2. TIMOLOL MALEATE [Suspect]
     Dosage: UNK
     Route: 047
  3. DORZOLAMIDE [Suspect]
     Dosage: UNK
     Route: 047
  4. BRIMONIDINE TARTRATE [Suspect]
     Dosage: UNK
     Route: 047
  5. REFRESH [Suspect]
     Dosage: UNK
     Route: 047

REACTIONS (1)
  - EYE IRRITATION [None]
